FAERS Safety Report 7889192-X (Version None)
Quarter: 2011Q4

REPORT INFORMATION
  Report Type: 
  Country: None (occurrence: None)
  Receive Date: 20111101
  Receipt Date: 20111024
  Transmission Date: 20120403
  Serious: Yes (Other)
  Sender: FDA-Public Use
  Company Number: DSA_47948_2011

PATIENT
  Sex: Female

DRUGS (3)
  1. PAXIL [Concomitant]
  2. WELLBUTRIN XL [Suspect]
     Indication: DEPRESSION
     Dosage: (150 MG QD ORAL)
     Route: 048
     Dates: start: 20080101
  3. CIPRO [Suspect]
     Indication: URINARY TRACT INFECTION
     Dosage: (DF ORAL)
     Route: 048
     Dates: end: 20111021

REACTIONS (4)
  - OEDEMA PERIPHERAL [None]
  - VASCULITIS [None]
  - STEVENS-JOHNSON SYNDROME [None]
  - PLEURAL EFFUSION [None]
